FAERS Safety Report 4848262-0 (Version None)
Quarter: 2005Q4

REPORT INFORMATION
  Report Type: 
  Country: None (occurrence: None)
  Receive Date: 20051207
  Receipt Date: 20051207
  Transmission Date: 20060501
  Serious: Yes (Hospitalization)
  Sender: FDA-Public Use
  Company Number: None

PATIENT
  Age: 70 Year
  Sex: Male
  Weight: 58.9676 kg

DRUGS (2)
  1. SILDENAFIL [Suspect]
     Indication: CARDIAC FAILURE CONGESTIVE
     Dosage: 50 MG PO Q 8 H
     Route: 048
     Dates: start: 20050714
  2. SILDENAFIL [Suspect]
     Indication: PULMONARY HYPERTENSION
     Dosage: 50 MG PO Q 8 H
     Route: 048
     Dates: start: 20050714

REACTIONS (4)
  - FLUID OVERLOAD [None]
  - HYPOTENSION [None]
  - HYPOVOLAEMIA [None]
  - UPPER RESPIRATORY TRACT INFECTION [None]
